FAERS Safety Report 4587951-2 (Version None)
Quarter: 2005Q1

REPORT INFORMATION
  Report Type: 
  Country: None (occurrence: None)
  Receive Date: 20050215
  Receipt Date: 20050131
  Transmission Date: 20050727
  Serious: Yes (Life-Threatening)
  Sender: FDA-Public Use
  Company Number: 02100-JPN-05-0052

PATIENT
  Age: 73 Year
  Sex: Male

DRUGS (8)
  1. CILOSTAZOL [Suspect]
     Indication: THROMBOTIC STROKE
     Dosage: 100 MG/200 MG
     Route: 048
     Dates: start: 20041214, end: 20041225
  2. CILOSTAZOL [Suspect]
     Indication: THROMBOTIC STROKE
     Dosage: 100 MG/200 MG
     Route: 048
     Dates: start: 20041226, end: 20050113
  3. AMLODIPINE BESYLATE [Concomitant]
  4. IFENPRODIL TARTRATE [Concomitant]
  5. MECOBALAMIN [Concomitant]
  6. SOFALCONE [Concomitant]
  7. LACTATED RINGER'S SOLUTION WITH DEXTRAN [Concomitant]
  8. OZAGREL  SODIUM [Concomitant]

REACTIONS (4)
  - BLEEDING TIME PROLONGED [None]
  - HAEMORRHAGIC DIATHESIS [None]
  - PURPURA [None]
  - THROMBOCYTOPENIA [None]
